FAERS Safety Report 9530317 (Version 2)
Quarter: 2013Q3

REPORT INFORMATION
  Report Type: Report from Study
  Country: VE (occurrence: VE)
  Receive Date: 20130917
  Receipt Date: 20130930
  Transmission Date: 20140515
  Serious: Yes (Congenital Anomaly, Other)
  Sender: FDA-Public Use
  Company Number: VE-ROCHE-1275516

PATIENT
  Sex: Female

DRUGS (3)
  1. MABTHERA [Suspect]
     Indication: RHEUMATOID ARTHRITIS
     Route: 042
     Dates: start: 20110805
  2. MABTHERA [Suspect]
     Route: 042
     Dates: start: 200902, end: 201102
  3. PREDNISONE [Concomitant]
     Route: 065

REACTIONS (4)
  - Psychomotor retardation [Unknown]
  - Cerebral palsy [Unknown]
  - Microcephaly [Unknown]
  - Maternal exposure timing unspecified [Unknown]
